FAERS Safety Report 17845617 (Version 5)
Quarter: 2020Q2

REPORT INFORMATION
  Report Type: Spontaneous
  Country: US (occurrence: US)
  Receive Date: 20200601
  Receipt Date: 20200609
  Transmission Date: 20200714
  Serious: No
  Sender: FDA-Public Use
  Company Number: US-PFIZER INC-2020212806

PATIENT
  Sex: Female

DRUGS (3)
  1. CALAN [Suspect]
     Active Substance: VERAPAMIL HYDROCHLORIDE
     Indication: BLOOD PRESSURE ABNORMAL
  2. CALAN [Suspect]
     Active Substance: VERAPAMIL HYDROCHLORIDE
     Indication: HEART RATE IRREGULAR
  3. CALAN [Suspect]
     Active Substance: VERAPAMIL HYDROCHLORIDE
     Indication: ANGINA PECTORIS
     Dosage: 60 MG (120 MG TABLET IN HALF), AS NEEDED (AS INDICATED BY PHYSICIAN)

REACTIONS (4)
  - Pyrexia [Unknown]
  - Blood pressure inadequately controlled [Unknown]
  - Decreased immune responsiveness [Unknown]
  - Infection [Unknown]
